FAERS Safety Report 11836117 (Version 1)
Quarter: 2015Q4

REPORT INFORMATION
  Report Type: Spontaneous
  Country: RO (occurrence: RO)
  Receive Date: 20151215
  Receipt Date: 20151215
  Transmission Date: 20160305
  Serious: Yes (Death)
  Sender: FDA-Public Use
  Company Number: RO-ABBVIE-15K-135-1518292-00

PATIENT
  Age: 74 Year
  Sex: Male
  Weight: 60 kg

DRUGS (1)
  1. HUMIRA [Suspect]
     Active Substance: ADALIMUMAB
     Indication: RHEUMATOID ARTHRITIS
     Route: 058
     Dates: start: 20120401, end: 20150930

REACTIONS (4)
  - Cardio-respiratory arrest [Fatal]
  - Multi-organ failure [Fatal]
  - Cholecystitis acute [Fatal]
  - Jaundice [Fatal]

NARRATIVE: CASE EVENT DATE: 20151015
